FAERS Safety Report 10560318 (Version 1)
Quarter: 2014Q4

REPORT INFORMATION
  Report Type: Spontaneous
  Country: US (occurrence: None)
  Receive Date: 20141031
  Receipt Date: 20141031
  Transmission Date: 20150529
  Serious: Yes (Disabling)
  Sender: FDA-Public Use
  Company Number: None

PATIENT
  Age: 44 Year
  Sex: Female
  Weight: 90.72 kg

DRUGS (2)
  1. EFFEXOR XR [Suspect]
     Active Substance: VENLAFAXINE HYDROCHLORIDE
     Indication: MAJOR DEPRESSION
     Dosage: 2 CAPS DAILY, ONCE DAILY, TAKEN BY MOUTH
     Route: 048
     Dates: start: 20141013, end: 20141018
  2. EFFEXOR XR [Suspect]
     Active Substance: VENLAFAXINE HYDROCHLORIDE
     Indication: SUICIDE ATTEMPT
     Dosage: 2 CAPS DAILY, ONCE DAILY, TAKEN BY MOUTH
     Route: 048
     Dates: start: 20141013, end: 20141018

REACTIONS (7)
  - Product quality issue [None]
  - Suicidal ideation [None]
  - Product substitution issue [None]
  - Depression [None]
  - Anger [None]
  - Agitation [None]
  - Drug effect variable [None]

NARRATIVE: CASE EVENT DATE: 20141013
